FAERS Safety Report 6096280-X (Version None)
Quarter: 2009Q1

REPORT INFORMATION
  Report Type: 
  Country: None (occurrence: None)
  Receive Date: 20090227
  Receipt Date: 20081110
  Transmission Date: 20090719
  Serious: No
  Sender: FDA-Public Use
  Company Number: A0754075A

PATIENT
  Age: 29 Year
  Sex: Female
  Weight: 68.2 kg

DRUGS (1)
  1. LAMICTAL [Suspect]
     Indication: BIPOLAR DISORDER
     Dosage: 25MG PER DAY
     Route: 048
     Dates: start: 20081008, end: 20081022

REACTIONS (2)
  - RASH [None]
  - RASH ERYTHEMATOUS [None]
